FAERS Safety Report 18505679 (Version 3)
Quarter: 2020Q4

REPORT INFORMATION
  Report Type: Spontaneous
  Country: JP (occurrence: JP)
  Receive Date: 20201116
  Receipt Date: 20201127
  Transmission Date: 20210114
  Serious: Yes (Hospitalization, Other)
  Sender: FDA-Public Use
  Company Number: JP-GLAXOSMITHKLINE-JP2020223527

PATIENT
  Age: 84 Year
  Sex: Male

DRUGS (1)
  1. REQUIP [Suspect]
     Active Substance: ROPINIROLE HYDROCHLORIDE
     Indication: PARKINSON^S DISEASE
     Dosage: 8 MG, QD
     Route: 048

REACTIONS (4)
  - Decreased appetite [Unknown]
  - Parkinson^s disease [Unknown]
  - Neoplasm malignant [Unknown]
  - Dysphagia [Not Recovered/Not Resolved]
